FAERS Safety Report 18142299 (Version 1)
Quarter: 2020Q3

REPORT INFORMATION
  Report Type: Spontaneous
  Country: US (occurrence: US)
  Receive Date: 20200812
  Receipt Date: 20200812
  Transmission Date: 20201103
  Serious: Yes (Death, Hospitalization, Other)
  Sender: FDA-Public Use
  Company Number: US-PFIZER INC-2020306981

PATIENT
  Age: 56 Year
  Sex: Male
  Weight: 95.71 kg

DRUGS (1)
  1. XELJANZ [Suspect]
     Active Substance: TOFACITINIB CITRATE
     Indication: RHEUMATOID ARTHRITIS
     Dosage: 5 MG, 2X/DAY (10MG TABLETS: 5MG IN THE MORNING AND 5MG AT NIGHT)

REACTIONS (3)
  - Wrong technique in product usage process [Unknown]
  - COVID-19 [Fatal]
  - Decreased immune responsiveness [Unknown]

NARRATIVE: CASE EVENT DATE: 20200726
